FAERS Safety Report 20146402 (Version 4)
Quarter: 2022Q1

REPORT INFORMATION
  Report Type: Spontaneous
  Country: JP (occurrence: JP)
  Receive Date: 20211203
  Receipt Date: 20220125
  Transmission Date: 20220423
  Serious: Yes (Death)
  Sender: FDA-Public Use
  Company Number: JP-PFIZER INC-202101630637

PATIENT
  Age: 78 Year
  Sex: Male
  Weight: 71.4 kg

DRUGS (9)
  1. AXITINIB [Suspect]
     Active Substance: AXITINIB
     Indication: Metastatic renal cell carcinoma
     Dosage: 10 MG, DAILY
     Dates: start: 20200319, end: 20200402
  2. AXITINIB [Suspect]
     Active Substance: AXITINIB
     Dosage: 10 MG, DAILY
     Dates: start: 20200403, end: 20200416
  3. AXITINIB [Suspect]
     Active Substance: AXITINIB
     Dosage: 8 MG, DAILY
     Dates: start: 20200417, end: 20200430
  4. AXITINIB [Suspect]
     Active Substance: AXITINIB
     Dosage: 6 MG, DAILY
     Dates: start: 20200501, end: 20200621
  5. AVELUMAB [Suspect]
     Active Substance: AVELUMAB
     Indication: Metastatic renal cell carcinoma
     Dosage: 10 MG/KG
     Dates: start: 20200319, end: 20200402
  6. AVELUMAB [Suspect]
     Active Substance: AVELUMAB
     Dosage: 8.6 MG/KG
     Dates: start: 20200403, end: 20200416
  7. AVELUMAB [Suspect]
     Active Substance: AVELUMAB
     Dosage: 8.6 MG/KG
     Dates: start: 20200417, end: 20200430
  8. AVELUMAB [Suspect]
     Active Substance: AVELUMAB
     Dosage: 8 MG/KG
     Dates: start: 20200501, end: 20200621
  9. AVELUMAB [Suspect]
     Active Substance: AVELUMAB
     Dosage: 10 MG/KG
     Dates: start: 20200807

REACTIONS (2)
  - Neoplasm progression [Fatal]
  - Immune system disorder [Unknown]

NARRATIVE: CASE EVENT DATE: 20200721
